FAERS Safety Report 22841784 (Version 2)
Quarter: 2023Q4

REPORT INFORMATION
  Report Type: Report from Study
  Country: GB (occurrence: GB)
  Receive Date: 20230821
  Receipt Date: 20231218
  Transmission Date: 20240109
  Serious: No
  Sender: FDA-Public Use
  Company Number: GB-SANDOZ-SDZ2023GB012471

PATIENT
  Sex: Female

DRUGS (2)
  1. OMNITROPE [Suspect]
     Active Substance: SOMATROPIN
     Indication: Hypopituitarism
     Dosage: 0.30 MG, QD
     Route: 058
     Dates: start: 20220125
  2. OMNITROPE [Suspect]
     Active Substance: SOMATROPIN
     Dosage: 0.30 MG, QD
     Route: 058
     Dates: start: 20220127

REACTIONS (3)
  - Brain fog [Unknown]
  - Incorrect dose administered [Unknown]
  - Product dose omission issue [Unknown]
